FAERS Safety Report 8220612-7 (Version None)
Quarter: 2012Q1

REPORT INFORMATION
  Report Type: 
  Country: None (occurrence: None)
  Receive Date: 20120320
  Receipt Date: 20120214
  Transmission Date: 20120608
  Serious: Yes (Other)
  Sender: FDA-Public Use
  Company Number: US-ASTELLAS-2012US002876

PATIENT
  Sex: Male

DRUGS (2)
  1. TARCEVA [Suspect]
     Dosage: 100 MG, UNKNOWN/D
     Route: 048
  2. TARCEVA [Suspect]
     Indication: PRODUCT USED FOR UNKNOWN INDICATION
     Dosage: 150 MG, UNKNOWN/D
     Route: 048

REACTIONS (10)
  - RASH [None]
  - SKIN EXFOLIATION [None]
  - RASH ERYTHEMATOUS [None]
  - PAIN [None]
  - CONJUNCTIVITIS [None]
  - CORNEAL OEDEMA [None]
  - DIARRHOEA [None]
  - ERYTHEMA [None]
  - SWELLING FACE [None]
  - EYE PAIN [None]
